FAERS Safety Report 5312857-0 (Version None)
Quarter: 2007Q2

REPORT INFORMATION
  Report Type: 
  Country: None (occurrence: None)
  Receive Date: 20070430
  Receipt Date: 20070420
  Transmission Date: 20071010
  Serious: Yes (Life-Threatening, Hospitalization, Other)
  Sender: FDA-Public Use
  Company Number: IT-ABBOTT-07P-083-0358920-00

PATIENT
  Sex: Female

DRUGS (3)
  1. DEPAKENE [Suspect]
     Indication: MYOCLONIC EPILEPSY
     Route: 048
     Dates: start: 20051001
  2. DEPAKENE [Suspect]
     Route: 048
     Dates: end: 20060531
  3. VIGABATRIN [Concomitant]
     Indication: CLONIC CONVULSION
     Route: 048
     Dates: start: 20050904, end: 20050930

REACTIONS (3)
  - COLD SWEAT [None]
  - HYPERGLYCAEMIA [None]
  - HYPOGLYCAEMIA [None]
